FAERS Safety Report 19917916 (Version 2)
Quarter: 2021Q4

REPORT INFORMATION
  Report Type: Spontaneous
  Country: FR (occurrence: FR)
  Receive Date: 20211004
  Receipt Date: 20211021
  Transmission Date: 20220303
  Serious: Yes (Life-Threatening, Hospitalization, Other)
  Sender: FDA-Public Use
  Company Number: None

PATIENT

DRUGS (8)
  1. LANSOPRAZOLE [Suspect]
     Active Substance: LANSOPRAZOLE
     Indication: Product used for unknown indication
     Dosage: 30 MG PER DAY
     Route: 065
  2. ATENOLOL [Concomitant]
     Active Substance: ATENOLOL
  3. ENALAPRIL [Concomitant]
     Active Substance: ENALAPRIL
  4. PAROXETINE [Concomitant]
     Active Substance: PAROXETINE
  5. ALPRAZOLAM [Concomitant]
     Active Substance: ALPRAZOLAM
  6. PHLOROGLUCINOL [Concomitant]
     Active Substance: PHLOROGLUCINOL
  7. POLYETHYLENE GLYCOLS [Concomitant]
     Active Substance: POLYETHYLENE GLYCOLS
  8. OXYCODONE [Concomitant]
     Active Substance: OXYCODONE
     Indication: Back pain

REACTIONS (7)
  - Colitis microscopic [Recovered/Resolved]
  - Diarrhoea [Recovered/Resolved]
  - Hypotension [Unknown]
  - Hypokalaemia [Recovered/Resolved]
  - Electrocardiogram change [Unknown]
  - Product substitution issue [Unknown]
  - Product prescribing issue [Unknown]
